FAERS Safety Report 18752171 (Version 1)
Quarter: 2021Q1

REPORT INFORMATION
  Report Type: Spontaneous
  Country: US (occurrence: US)
  Receive Date: 20210118
  Receipt Date: 20210118
  Transmission Date: 20210419
  Serious: No
  Sender: FDA-Public Use
  Company Number: US-FOUNDATIONCONSUMERHC-2020-US-020874

PATIENT
  Age: 31 Year
  Sex: Female
  Weight: 59.87 kg

DRUGS (4)
  1. CURCUMIN [Concomitant]
     Active Substance: CURCUMIN
  2. FISH OIL [Concomitant]
     Active Substance: FISH OIL
  3. TAKE ACTION [Suspect]
     Active Substance: LEVONORGESTREL
     Indication: POST COITAL CONTRACEPTION
     Dosage: 1.5 MG X AN UNSPECIFIED AMOUNT OF USES
     Route: 048
     Dates: end: 20201012
  4. TUMERIC [Concomitant]
     Active Substance: HERBALS\TURMERIC

REACTIONS (4)
  - Dysmenorrhoea [Not Recovered/Not Resolved]
  - Vaginal haemorrhage [Not Recovered/Not Resolved]
  - Menstruation irregular [Unknown]
  - Dizziness [Not Recovered/Not Resolved]

NARRATIVE: CASE EVENT DATE: 202010
